FAERS Safety Report 20608811 (Version 2)
Quarter: 2022Q1

REPORT INFORMATION
  Report Type: Spontaneous
  Country: FR (occurrence: None)
  Receive Date: 20220317
  Receipt Date: 20220323
  Transmission Date: 20220423
  Serious: Yes (Other)
  Sender: FDA-Public Use
  Company Number: 2022A105717

PATIENT
  Age: 3 Year
  Sex: Male
  Weight: 13.6 kg

DRUGS (2)
  1. ESOMEPRAZOLE [Suspect]
     Active Substance: ESOMEPRAZOLE
     Indication: Cough
     Dosage: 10 MILLIGRAM, 1/DAY
     Route: 048
     Dates: start: 20210715, end: 20211125
  2. ESOMEPRAZOLE [Suspect]
     Active Substance: ESOMEPRAZOLE
     Indication: Gastrooesophageal reflux disease
     Dosage: 10 MILLIGRAM, 1/DAY
     Route: 048
     Dates: start: 20210715, end: 20211125

REACTIONS (2)
  - Condition aggravated [Recovering/Resolving]
  - Cough [Recovering/Resolving]

NARRATIVE: CASE EVENT DATE: 20210701
